FAERS Safety Report 14738432 (Version 1)
Quarter: 2018Q2

REPORT INFORMATION
  Report Type: Spontaneous
  Country: US (occurrence: US)
  Receive Date: 20180404
  Receipt Date: 20180404
  Transmission Date: 20180711
  Serious: Yes (Hospitalization)
  Sender: FDA-Public Use
  Company Number: None

PATIENT
  Age: 46 Year
  Sex: Male

DRUGS (14)
  1. TUMS [Concomitant]
     Active Substance: CALCIUM CARBONATE
  2. VITAMIN D [Concomitant]
     Active Substance: CHOLECALCIFEROL
  3. WELLBUTRIN [Concomitant]
     Active Substance: BUPROPION HYDROCHLORIDE
  4. FELODIPINE. [Concomitant]
     Active Substance: FELODIPINE
  5. PROPANEDIOL [Concomitant]
  6. PREDNISONE. [Concomitant]
     Active Substance: PREDNISONE
  7. AMLIDIPIN [Concomitant]
  8. NICOTINAMIDE [Concomitant]
     Active Substance: NIACINAMIDE
  9. PRILOSECT [Concomitant]
  10. NORVASC [Concomitant]
     Active Substance: AMLODIPINE BESYLATE
  11. TACROLIMUS 1MG CAP [Suspect]
     Active Substance: TACROLIMUS
     Indication: RENAL TRANSPLANT
     Route: 048
     Dates: start: 20161008
  12. ACYCLOVIR. [Concomitant]
     Active Substance: ACYCLOVIR
  13. VELCADE [Concomitant]
     Active Substance: BORTEZOMIB
  14. MULITI VIT [Concomitant]

REACTIONS (2)
  - Therapy change [None]
  - Transplant [None]

NARRATIVE: CASE EVENT DATE: 201803
